FAERS Safety Report 8165259-6 (Version None)
Quarter: 2012Q1

REPORT INFORMATION
  Report Type: 
  Country: None (occurrence: None)
  Receive Date: 20120222
  Receipt Date: 20120222
  Transmission Date: 20120608
  Serious: Yes (Other)
  Sender: FDA-Public Use
  Company Number: None

PATIENT
  Age: 63 Year
  Sex: Female
  Weight: 53.5244 kg

DRUGS (1)
  1. GABAPENTIN [Suspect]
     Indication: TOOTHACHE
     Dosage: 1 X 8 HR ORAL
     Route: 048
     Dates: start: 20120121, end: 20120204

REACTIONS (5)
  - HALLUCINATION [None]
  - FEELING ABNORMAL [None]
  - COORDINATION ABNORMAL [None]
  - AMNESIA [None]
  - TREMOR [None]
